FAERS Safety Report 5137887-3 (Version None)
Quarter: 2006Q4

REPORT INFORMATION
  Report Type: 
  Country: None (occurrence: None)
  Receive Date: 20061030
  Receipt Date: 20060203
  Transmission Date: 20070319
  Serious: No
  Sender: FDA-Public Use
  Company Number: US-GLAXOSMITHKLINE-A0592290A

PATIENT
  Age: 69 Year
  Sex: Female

DRUGS (4)
  1. ADVAIR HFA [Suspect]
     Indication: BRONCHITIS
     Dosage: 1PUFF SINGLE DOSE
     Route: 055
     Dates: start: 20060202, end: 20060202
  2. LIPITOR [Concomitant]
  3. SPIRIVA [Concomitant]
  4. AVELOX [Concomitant]

REACTIONS (8)
  - ANOREXIA [None]
  - CHILLS [None]
  - FATIGUE [None]
  - HEART RATE INCREASED [None]
  - NAUSEA [None]
  - NERVOUSNESS [None]
  - SOMNOLENCE [None]
  - TREMOR [None]
